FAERS Safety Report 5318541-1 (Version None)
Quarter: 2007Q2

REPORT INFORMATION
  Report Type: 
  Country: None (occurrence: None)
  Receive Date: 20070501
  Receipt Date: 20070416
  Transmission Date: 20071010
  Serious: Yes (Other)
  Sender: FDA-Public Use
  Company Number: ACO_0330_2007

PATIENT
  Sex: Female
  Weight: 47.6277 kg

DRUGS (7)
  1. ZANAFLEX [Suspect]
     Indication: HEADACHE
     Dosage: 4 MG ORAL
     Route: 048
     Dates: start: 20070320, end: 20070321
  2. ZANAFLEX [Suspect]
     Indication: MUSCLE SPASMS
     Dosage: 4 MG ORAL
     Route: 048
     Dates: start: 20070320, end: 20070321
  3. CYMBALTA [Concomitant]
  4. PROVIGIL [Concomitant]
  5. KLONOPIN [Concomitant]
  6. GABAPENTIN [Concomitant]
  7. VERAPAMIL [Concomitant]

REACTIONS (3)
  - CONFUSIONAL STATE [None]
  - GAIT DISTURBANCE [None]
  - LOSS OF CONSCIOUSNESS [None]
